FAERS Safety Report 10210185 (Version 1)
Quarter: 2014Q2

REPORT INFORMATION
  Report Type: Spontaneous
  Country: US (occurrence: None)
  Receive Date: 20140530
  Receipt Date: 20140530
  Transmission Date: 20141212
  Serious: No
  Sender: FDA-Public Use
  Company Number: None

PATIENT
  Age: 28 Year
  Sex: Female

DRUGS (1)
  1. HUMIRA [Suspect]
     Indication: CROHN^S DISEASE
     Dosage: 40 MG?WEEKLY?SUB Q
     Dates: start: 20130629

REACTIONS (5)
  - Device issue [None]
  - Injection site pain [None]
  - Injection site erythema [None]
  - Injection site bruising [None]
  - Injection site haemorrhage [None]
